FAERS Safety Report 4379757-4 (Version None)
Quarter: 2004Q2

REPORT INFORMATION
  Report Type: 
  Country: None (occurrence: None)
  Receive Date: 20040617
  Receipt Date: 20040610
  Transmission Date: 20050107
  Serious: Yes (Life-Threatening, Hospitalization)
  Sender: FDA-Public Use
  Company Number: IT-GLAXOSMITHKLINE-B0335712A

PATIENT
  Age: 66 Year
  Sex: Female

DRUGS (6)
  1. CEFTAZIDIME SODIUM [Suspect]
     Indication: PROPHYLAXIS
     Dosage: 1G PER DAY
     Route: 030
     Dates: start: 20040526, end: 20040526
  2. DROPERIDOL [Concomitant]
     Indication: PROPHYLAXIS
     Dosage: 1ML PER DAY
     Route: 030
     Dates: start: 20040526, end: 20040526
  3. FENTANYL [Concomitant]
     Indication: PROPHYLAXIS
     Dosage: 1ML PER DAY
     Route: 030
     Dates: start: 20040526, end: 20040526
  4. FENTANYL CITRATE [Concomitant]
     Indication: PROPHYLAXIS
     Dosage: 1ML PER DAY
     Route: 042
     Dates: start: 20040526, end: 20040526
  5. MEPIVACAINE + ADRENALINE [Concomitant]
     Indication: PROPHYLAXIS
     Dosage: 20ML PER DAY
     Route: 065
     Dates: start: 20040526, end: 20040526
  6. TEICOPLANIN [Concomitant]
     Indication: PROPHYLAXIS
     Dosage: 400MG PER DAY
     Route: 042
     Dates: start: 20040526, end: 20040526

REACTIONS (1)
  - PULMONARY OEDEMA [None]
